FAERS Safety Report 4594888-1 (Version None)
Quarter: 2005Q1

REPORT INFORMATION
  Report Type: 
  Country: None (occurrence: None)
  Receive Date: 20050223
  Receipt Date: 20050210
  Transmission Date: 20050727
  Serious: Yes (Disabling)
  Sender: FDA-Public Use
  Company Number: USA-2005-0018920

PATIENT
  Age: 59 Year
  Sex: Female

DRUGS (12)
  1. OXYCONTIN [Suspect]
     Indication: PAIN
     Dosage: 80 MG, ORAL
     Route: 048
  2. OXYCODONE HCL [Suspect]
     Indication: PAIN
     Dosage: 2.5 MG, ORAL
     Route: 048
  3. ENDEP [Concomitant]
  4. MURELAX (OXAZEPAM) [Concomitant]
  5. ALODORM (NITRAZEPAM) [Concomitant]
  6. ATROVENT [Concomitant]
  7. VENTOLIN [Concomitant]
  8. CALTRATE (CALCIUM CARBONATE) [Concomitant]
  9. NAPROSYN - SLOW RELEASE 'ELAN^ (NAPROXEN SODIUM) [Concomitant]
  10. PREMARIN [Concomitant]
  11. LIPITOR [Concomitant]
  12. LASIX [Concomitant]

REACTIONS (2)
  - CHRONIC OBSTRUCTIVE PULMONARY DISEASE [None]
  - DRUG INEFFECTIVE [None]
